FAERS Safety Report 4315253-8 (Version None)
Quarter: 2004Q1

REPORT INFORMATION
  Report Type: 
  Country: None (occurrence: None)
  Receive Date: 20040309
  Receipt Date: 20040227
  Transmission Date: 20041129
  Serious: Yes (Hospitalization)
  Sender: FDA-Public Use
  Company Number: FR-JNJFOC-20031203397

PATIENT
  Age: 51 Year
  Sex: Male
  Weight: 86 kg

DRUGS (6)
  1. REMICADE [Suspect]
     Indication: ANKYLOSING SPONDYLITIS
     Dosage: SEE IMAGE
     Route: 042
     Dates: start: 20030619, end: 20030703
  2. REMICADE [Suspect]
     Indication: ANKYLOSING SPONDYLITIS
     Dosage: SEE IMAGE
     Route: 042
     Dates: start: 20030731, end: 20030731
  3. REMICADE [Suspect]
     Indication: ANKYLOSING SPONDYLITIS
     Dosage: SEE IMAGE
     Route: 042
     Dates: start: 20030911, end: 20031023
  4. INDOMETHACIN [Concomitant]
  5. OMEPRAZOLE [Concomitant]
  6. CO-APROVEL (KARVEA HCT) [Concomitant]

REACTIONS (11)
  - BACTERIAL INFECTION [None]
  - CHRONIC SINUSITIS [None]
  - EYELID OEDEMA [None]
  - HORDEOLUM [None]
  - INFECTION [None]
  - MENINGEAL DISORDER [None]
  - OSTEITIS [None]
  - OSTEOLYSIS [None]
  - PURULENCE [None]
  - SINUS POLYP [None]
  - VISUAL DISTURBANCE [None]
